FAERS Safety Report 8327408-6 (Version None)
Quarter: 2012Q2

REPORT INFORMATION
  Report Type: 
  Country: None (occurrence: None)
  Receive Date: 20120430
  Receipt Date: 20120417
  Transmission Date: 20120825
  Serious: Yes (Other)
  Sender: FDA-Public Use
  Company Number: US-JNJFOC-20120409022

PATIENT

DRUGS (2)
  1. MIDOSTAURIN (MIDOSTAURIN) UNSPECIFIED [Suspect]
     Indication: ACUTE MYELOID LEUKAEMIA
     Dosage: 1) COMBINED WITH DECITABINE EITHER SEQUENTIALLY (DAYS 8-21) OR CONCURRENTLY (DAYS 1-28)
  2. DECITABINE [Suspect]
     Indication: ACUTE MYELOID LEUKAEMIA
     Dosage: 20 MG/M2, IN 1 CYCLICAL, INTRAVENOUS
     Route: 042

REACTIONS (1)
  - ELECTROCARDIOGRAM QT PROLONGED [None]
